FAERS Safety Report 17471567 (Version 1)
Quarter: 2020Q1

REPORT INFORMATION
  Report Type: Report from Study
  Country: JP (occurrence: JP)
  Receive Date: 20200228
  Receipt Date: 20200228
  Transmission Date: 20200409
  Serious: Yes (Death, Other)
  Sender: FDA-Public Use
  Company Number: JP-ROCHE-2524310

PATIENT
  Age: 76 Year
  Sex: Male
  Weight: 62 kg

DRUGS (22)
  1. OBINUTUZUMAB. [Suspect]
     Active Substance: OBINUTUZUMAB
     Route: 042
     Dates: start: 20190219, end: 20190219
  2. OBINUTUZUMAB. [Suspect]
     Active Substance: OBINUTUZUMAB
     Route: 042
     Dates: start: 20190514, end: 20190514
  3. RITUXIMAB. [Suspect]
     Active Substance: RITUXIMAB
     Indication: B-CELL LYMPHOMA
     Route: 041
  4. DOXORUBICIN HYDROCHLORIDE. [Concomitant]
     Active Substance: DOXORUBICIN HYDROCHLORIDE
     Indication: B-CELL LYMPHOMA
     Route: 042
  5. BENDAMUSTINE HYDROCHLORIDE. [Concomitant]
     Active Substance: BENDAMUSTINE HYDROCHLORIDE
     Indication: B-CELL LYMPHOMA
     Route: 042
  6. DEXAMETHASONE SODIUM PHOSPHATE. [Concomitant]
     Active Substance: DEXAMETHASONE SODIUM PHOSPHATE
     Indication: B-CELL LYMPHOMA
     Route: 042
  7. IFOSFAMIDE. [Concomitant]
     Active Substance: IFOSFAMIDE
     Indication: B-CELL LYMPHOMA
     Route: 042
  8. PREDNISOLONE. [Concomitant]
     Active Substance: PREDNISOLONE
     Indication: B-CELL LYMPHOMA
     Route: 048
     Dates: start: 20190129, end: 20190702
  9. ETOPOSIDE. [Concomitant]
     Active Substance: ETOPOSIDE
     Indication: B-CELL LYMPHOMA
     Route: 042
  10. OBINUTUZUMAB. [Suspect]
     Active Substance: OBINUTUZUMAB
     Indication: B-CELL LYMPHOMA
     Route: 042
     Dates: start: 20190129, end: 20190129
  11. OBINUTUZUMAB. [Suspect]
     Active Substance: OBINUTUZUMAB
     Route: 042
     Dates: start: 20190402, end: 20190402
  12. OBINUTUZUMAB. [Suspect]
     Active Substance: OBINUTUZUMAB
     Route: 042
     Dates: start: 20190423, end: 20190423
  13. METHYLPREDNISOLONE NA SUCCINATE [Concomitant]
     Active Substance: METHYLPREDNISOLONE SODIUM SUCCINATE
     Indication: B-CELL LYMPHOMA
     Route: 042
  14. CYTARABINE. [Concomitant]
     Active Substance: CYTARABINE
     Indication: B-CELL LYMPHOMA
     Route: 042
  15. VINCRISTINE SULFATE. [Suspect]
     Active Substance: VINCRISTINE SULFATE
     Indication: B-CELL LYMPHOMA
     Route: 042
     Dates: start: 20190129, end: 20190702
  16. CARBOPLATIN. [Concomitant]
     Active Substance: CARBOPLATIN
     Indication: B-CELL LYMPHOMA
     Route: 042
  17. OBINUTUZUMAB. [Suspect]
     Active Substance: OBINUTUZUMAB
     Route: 042
     Dates: start: 20190607, end: 20190607
  18. CYCLOPHOSPHAMIDE MONOHYDRATE [Suspect]
     Active Substance: CYCLOPHOSPHAMIDE
     Indication: B-CELL LYMPHOMA
     Route: 042
     Dates: start: 20190129, end: 20190702
  19. OBINUTUZUMAB. [Suspect]
     Active Substance: OBINUTUZUMAB
     Route: 042
     Dates: start: 20190205, end: 20190205
  20. OBINUTUZUMAB. [Suspect]
     Active Substance: OBINUTUZUMAB
     Route: 042
     Dates: start: 20190312, end: 20190312
  21. OBINUTUZUMAB. [Suspect]
     Active Substance: OBINUTUZUMAB
     Route: 042
     Dates: start: 20190702, end: 20190702
  22. CISPLATIN. [Concomitant]
     Active Substance: CISPLATIN
     Indication: B-CELL LYMPHOMA
     Route: 042

REACTIONS (3)
  - Disease progression [Fatal]
  - Neutrophil count decreased [Recovered/Resolved]
  - White blood cell count decreased [Recovered/Resolved]

NARRATIVE: CASE EVENT DATE: 20190204
